FAERS Safety Report 9452845 (Version 1)
Quarter: 2013Q3

REPORT INFORMATION
  Report Type: Spontaneous
  Country: US (occurrence: None)
  Receive Date: 20130808
  Receipt Date: 20130808
  Transmission Date: 20140515
  Serious: No
  Sender: FDA-Public Use
  Company Number: None

PATIENT
  Age: 50 Year
  Sex: Female

DRUGS (1)
  1. TECFIDERA [Suspect]
     Indication: MULTIPLE SCLEROSIS
     Dosage: (SLOW TITRATION)
     Route: 048
     Dates: start: 20130726, end: 20130730

REACTIONS (6)
  - Influenza like illness [None]
  - Pyrexia [None]
  - Sleep disorder [None]
  - Gastrointestinal disorder [None]
  - Bedridden [None]
  - Swelling [None]
